FAERS Safety Report 4425775-7 (Version None)
Quarter: 2004Q3

REPORT INFORMATION
  Report Type: 
  Country: None (occurrence: None)
  Receive Date: 20040810
  Receipt Date: 20040803
  Transmission Date: 20050211
  Serious: Yes (Hospitalization, Other)
  Sender: FDA-Public Use
  Company Number: 20468

PATIENT
  Age: 71 Year
  Sex: Male
  Weight: 85.7298 kg

DRUGS (5)
  1. NIASPAN [Suspect]
     Dosage: 1000 MG QHS PO
     Route: 048
  2. PLAVIX [Concomitant]
  3. PAXIL [Concomitant]
  4. OXYCONTIN [Concomitant]
  5. LOTREL [Concomitant]

REACTIONS (1)
  - DYSPNOEA [None]
